FAERS Safety Report 9503816 (Version 1)
Quarter: 2013Q1

REPORT INFORMATION
  Report Type: Spontaneous
  Country: US (occurrence: None)
  Receive Date: 20130225
  Receipt Date: 20130225
  Transmission Date: 20140127
  Serious: No
  Sender: FDA-Public Use
  Company Number: 366189

PATIENT
  Age: 70 Year
  Sex: Male

DRUGS (6)
  1. VICTOZA [Suspect]
     Indication: TYPE 2 DIABETES MELLITUS
     Route: 058
     Dates: start: 20121023, end: 20121106
  2. ALEVE (NAPROXEN SODIUM) [Concomitant]
  3. FLOMAX /00889901/ (MORNIFLUMATE) [Concomitant]
  4. GLYBURIDE (GLIBENCLAMIDE) [Concomitant]
  5. METFORMIN (METFORMIN) [Concomitant]
  6. PROSCAR [Concomitant]

REACTIONS (3)
  - Hypoaesthesia [None]
  - Arthralgia [None]
  - Diabetes mellitus inadequate control [None]
